FAERS Safety Report 9980250 (Version 1)
Quarter: 2014Q1

REPORT INFORMATION
  Report Type: Report from Study
  Country: US (occurrence: US)
  Receive Date: 20140307
  Receipt Date: 20140307
  Transmission Date: 20141002
  Serious: No
  Sender: FDA-Public Use
  Company Number: US-ABBVIE-13P-163-1175757-00

PATIENT
  Age: 33 Year
  Sex: Female

DRUGS (5)
  1. HUMIRA [Suspect]
     Indication: PSORIASIS
     Dosage: LOADING DOSE
     Dates: start: 20131127
  2. VICTOZA [Concomitant]
     Indication: POLYCYSTIC OVARIES
  3. SINGULAIR [Concomitant]
     Indication: ASTHMA
  4. ADVAIR [Concomitant]
     Indication: ASTHMA
  5. XYZAL [Concomitant]
     Indication: HYPERSENSITIVITY
     Dosage: A PILL A DAY

REACTIONS (1)
  - Injection site pain [Recovered/Resolved]
